FAERS Safety Report 7304309-3 (Version None)
Quarter: 2011Q1

REPORT INFORMATION
  Report Type: 
  Country: None (occurrence: None)
  Receive Date: 20110221
  Receipt Date: 20110211
  Transmission Date: 20110831
  Serious: Yes (Other)
  Sender: FDA-Public Use
  Company Number: IE-ASTRAZENECA-2011SE08291

PATIENT
  Age: 25 Year
  Sex: Female

DRUGS (3)
  1. ACETAMINOPHEN W/ CODEINE [Concomitant]
     Indication: PAIN
     Dosage: TWO CAPSULES DAILY
     Route: 048
  2. ZOMIG [Suspect]
     Indication: MIGRAINE
     Route: 048
     Dates: start: 20101201
  3. GALFER [Concomitant]
     Indication: ANAEMIA
     Dosage: ONE TABLET DAILY
     Route: 048

REACTIONS (2)
  - CHOKING SENSATION [None]
  - LOCAL SWELLING [None]
